FAERS Safety Report 6501142-7 (Version None)
Quarter: 2009Q4

REPORT INFORMATION
  Report Type: 
  Country: None (occurrence: None)
  Receive Date: 20091216
  Receipt Date: 20090810
  Transmission Date: 20100525
  Serious: No
  Sender: FDA-Public Use
  Company Number: A0802203A

PATIENT
  Age: 43 Year
  Sex: Male

DRUGS (3)
  1. COMMIT [Suspect]
  2. NICODERM CQ [Suspect]
  3. NICODERM CQ [Suspect]

REACTIONS (2)
  - APPLICATION SITE PAIN [None]
  - ORAL DISCOMFORT [None]
